FAERS Safety Report 7985387-5 (Version None)
Quarter: 2011Q4

REPORT INFORMATION
  Report Type: 
  Country: None (occurrence: None)
  Receive Date: 20111216
  Receipt Date: 20111207
  Transmission Date: 20120403
  Serious: Yes (Hospitalization)
  Sender: FDA-Public Use
  Company Number: US-ROCHE-1021952

PATIENT
  Sex: Female
  Weight: 74.91 kg

DRUGS (4)
  1. XELODA [Suspect]
     Indication: PRODUCT USED FOR UNKNOWN INDICATION
     Dosage: 500 MG 3 TABS AM AND 500 MG 2 TABS HS
     Route: 048
     Dates: start: 20111003, end: 20111016
  2. DILANTIN [Concomitant]
  3. XELODA [Suspect]
     Dosage: 500 MG 3 TABS AM AND 500 MG 2 TABS HS
     Route: 048
     Dates: start: 20111024, end: 20111106
  4. XELODA [Suspect]
     Dosage: 500 MG 3 TABS AM AND 500 MG 2 TABS HS
     Route: 048
     Dates: start: 20111114, end: 20111127

REACTIONS (12)
  - PLATELET COUNT DECREASED [None]
  - CELLULITIS [None]
  - RED BLOOD CELL COUNT DECREASED [None]
  - DYSPNOEA [None]
  - GAIT DISTURBANCE [None]
  - SEPSIS [None]
  - STOMATITIS [None]
  - INSOMNIA [None]
  - ASTHENIA [None]
  - DEHYDRATION [None]
  - WHITE BLOOD CELL COUNT DECREASED [None]
  - SOMNOLENCE [None]
